FAERS Safety Report 7843137-7 (Version None)
Quarter: 2011Q4

REPORT INFORMATION
  Report Type: 
  Country: None (occurrence: None)
  Receive Date: 20111021
  Receipt Date: 20111021
  Transmission Date: 20120403
  Serious: Yes (Hospitalization, Other)
  Sender: FDA-Public Use
  Company Number: None

PATIENT
  Sex: Female
  Weight: 86 kg

DRUGS (1)
  1. DELFLEX W/ DEXTROSE 1.5% [Suspect]
     Indication: RENAL FAILURE CHRONIC
     Dosage: 033
     Dates: start: 20101222, end: 20110502

REACTIONS (3)
  - PRODUCT QUALITY ISSUE [None]
  - DISEASE RECURRENCE [None]
  - INFECTIOUS PERITONITIS [None]
